FAERS Safety Report 22788731 (Version 3)
Quarter: 2023Q4

REPORT INFORMATION
  Report Type: Spontaneous
  Country: CA (occurrence: CA)
  Receive Date: 20230804
  Receipt Date: 20231204
  Transmission Date: 20240109
  Serious: Yes (Other)
  Sender: FDA-Public Use
  Company Number: CA-PFIZER INC-202200139479

PATIENT
  Age: 55 Year
  Sex: Male
  Weight: 68.2 kg

DRUGS (5)
  1. IBRANCE [Suspect]
     Active Substance: PALBOCICLIB
     Indication: Breast cancer male
     Dosage: UNK
     Dates: start: 20220121
  2. IBRANCE [Suspect]
     Active Substance: PALBOCICLIB
     Dosage: 125 MG, CYCLIC 21 DAYS ON/ 7 DAYS OFF
     Route: 048
     Dates: start: 20220216
  3. IBRANCE [Suspect]
     Active Substance: PALBOCICLIB
     Dosage: 125 MG, 1 X/DAY, THEN 7 DAYS OFF
     Route: 048
     Dates: start: 20231123
  4. LETROZOLE [Concomitant]
     Active Substance: LETROZOLE
     Dosage: 2.5 MG
     Dates: start: 20220123
  5. GOSERELIN ACETATE [Concomitant]
     Active Substance: GOSERELIN ACETATE
     Dosage: 10.8 MG, CYCLIC (EVERY 3 MONTHS)

REACTIONS (8)
  - Osteolysis [Unknown]
  - Bone lesion [Unknown]
  - Bladder hypertrophy [Unknown]
  - Bladder trabeculation [Unknown]
  - Prostatomegaly [Unknown]
  - Off label use [Unknown]
  - Product dose omission issue [Unknown]
  - Product use issue [Unknown]

NARRATIVE: CASE EVENT DATE: 20220121
